FAERS Safety Report 25867865 (Version 1)
Quarter: 2025Q4

REPORT INFORMATION
  Report Type: Spontaneous
  Country: AU (occurrence: AU)
  Receive Date: 20251001
  Receipt Date: 20251001
  Transmission Date: 20260117
  Serious: Yes (Hospitalization, Other)
  Sender: LEGACY PHARMACEUTICAL PACKAGING
  Company Number: AU-LEGACY PHARMA INC. SEZC-LGP202509-000264

PATIENT
  Age: 80 Year
  Sex: Male

DRUGS (1)
  1. AZATHIOPRINE [Suspect]
     Active Substance: AZATHIOPRINE
     Indication: Anti-neutrophil cytoplasmic antibody positive vasculitis
     Dosage: 50 MILLIGRAM, UNK
     Route: 065

REACTIONS (14)
  - Renal injury [Recovered/Resolved]
  - Distributive shock [Unknown]
  - Hypoxia [Unknown]
  - Leukocytosis [Recovered/Resolved]
  - Neutrophilia [Recovered/Resolved]
  - C-reactive protein increased [Unknown]
  - Drug reaction with eosinophilia and systemic symptoms [Unknown]
  - Sepsis [Unknown]
  - Palmar erythema [Recovered/Resolved]
  - Neutrophilic dermatosis [Unknown]
  - Hepatic function abnormal [Recovered/Resolved]
  - Hypotension [Unknown]
  - Condition aggravated [Unknown]
  - Product use in unapproved indication [Unknown]
